FAERS Safety Report 11648539 (Version 1)
Quarter: 2015Q4

REPORT INFORMATION
  Report Type: Spontaneous
  Country: US (occurrence: US)
  Receive Date: 20151021
  Receipt Date: 20151021
  Transmission Date: 20160304
  Serious: No
  Sender: FDA-Public Use
  Company Number: US-PURDUE-USA-2015-0123294

PATIENT
  Sex: Female

DRUGS (1)
  1. OXYCONTIN [Suspect]
     Active Substance: OXYCODONE HYDROCHLORIDE
     Indication: PRODUCT USED FOR UNKNOWN INDICATION
     Dosage: 10 MG, UNK
     Route: 048
     Dates: start: 2014

REACTIONS (5)
  - Fatigue [Unknown]
  - Product physical issue [Unknown]
  - Feeling abnormal [Unknown]
  - Somnolence [Unknown]
  - Drug effect increased [Unknown]

NARRATIVE: CASE EVENT DATE: 20150504
